FAERS Safety Report 16225392 (Version 1)
Quarter: 2019Q2

REPORT INFORMATION
  Report Type: Spontaneous
  Country: US (occurrence: US)
  Receive Date: 20190422
  Receipt Date: 20190422
  Transmission Date: 20190711
  Serious: Yes (Other)
  Sender: FDA-Public Use
  Company Number: US-NOVOPROD-658230

PATIENT
  Sex: Female

DRUGS (2)
  1. NOVOLOG [Suspect]
     Active Substance: INSULIN ASPART
     Indication: PRODUCT USED FOR UNKNOWN INDICATION
     Dosage: UNK
     Route: 058
  2. NOVOLIN R [Suspect]
     Active Substance: INSULIN HUMAN
     Indication: PRODUCT USED FOR UNKNOWN INDICATION
     Dosage: UNK
     Route: 058

REACTIONS (8)
  - Neoplasm malignant [Unknown]
  - Weight increased [Unknown]
  - Postmenopausal haemorrhage [Unknown]
  - Post procedural complication [Unknown]
  - Cholecystectomy [Unknown]
  - Abdominal adhesions [Unknown]
  - Uterine leiomyoma [Unknown]
  - Squamous cell carcinoma [Unknown]
